FAERS Safety Report 4465259-3 (Version None)
Quarter: 2004Q3

REPORT INFORMATION
  Report Type: 
  Country: None (occurrence: None)
  Receive Date: 20040929
  Receipt Date: 20040916
  Transmission Date: 20050211
  Serious: Yes (Death, Life-Threatening, Hospitalization)
  Sender: FDA-Public Use
  Company Number: US-SHR-03-001062

PATIENT
  Age: 61 Year
  Sex: Male

DRUGS (5)
  1. FLUDARA [Suspect]
     Indication: CHRONIC LYMPHOCYTIC LEUKAEMIA
     Dosage: 49 MG DAILY, INTRAVENOUS
     Route: 042
     Dates: start: 20020722, end: 20020724
  2. CYCLOPHOSPHAMIDE [Suspect]
     Indication: CHRONIC LYMPHOCYTIC LEUKAEMIA
     Dosage: 488 MG DAILY, INTRAVENOUS
     Route: 042
     Dates: start: 20020722, end: 20020724
  3. AUGMENTIN [Concomitant]
  4. ACYCLOVIR [Concomitant]
  5. ALLOPURINOL [Concomitant]

REACTIONS (17)
  - ACTIVATED PARTIAL THROMBOPLASTIN TIME PROLONGED [None]
  - BLOOD POTASSIUM INCREASED [None]
  - BODY TEMPERATURE INCREASED [None]
  - BRADYCARDIA [None]
  - CHRONIC LYMPHOCYTIC LEUKAEMIA [None]
  - DISSEMINATED INTRAVASCULAR COAGULATION [None]
  - GENERAL PHYSICAL HEALTH DETERIORATION [None]
  - HAEMOGLOBIN DECREASED [None]
  - HYPOTENSION [None]
  - LUNG INFECTION PSEUDOMONAL [None]
  - METABOLIC ACIDOSIS [None]
  - PLATELET COUNT DECREASED [None]
  - PNEUMONIA [None]
  - PROTHROMBIN TIME PROLONGED [None]
  - RENAL FAILURE ACUTE [None]
  - RESPIRATORY DISTRESS [None]
  - SEPSIS [None]
